FAERS Safety Report 5822558-8 (Version None)
Quarter: 2008Q3

REPORT INFORMATION
  Report Type: 
  Country: None (occurrence: None)
  Receive Date: 20080725
  Receipt Date: 20071218
  Transmission Date: 20090109
  Serious: No
  Sender: FDA-Public Use
  Company Number: US-AMGEN-KDL257352

PATIENT
  Sex: Female

DRUGS (2)
  1. EPOGEN [Suspect]
     Indication: DIALYSIS
  2. VALTREX [Concomitant]

REACTIONS (1)
  - HAEMOGLOBIN DECREASED [None]
